FAERS Safety Report 9629305 (Version 3)
Quarter: 2013Q4

REPORT INFORMATION
  Report Type: Spontaneous
  Country: IT (occurrence: IT)
  Receive Date: 20131017
  Receipt Date: 20131205
  Transmission Date: 20140711
  Serious: Yes (Hospitalization, Other)
  Sender: FDA-Public Use
  Company Number: IT-PFIZER INC-2013294650

PATIENT
  Age: 72 Year
  Sex: Male

DRUGS (6)
  1. TORVAST [Suspect]
     Indication: CORONARY ARTERY DISEASE
     Dosage: 10 MG, 1X/DAY
     Route: 048
     Dates: start: 20040101, end: 20130904
  2. ACETYLSALICYLIC ACID [Concomitant]
     Dosage: 100 MG, UNK
  3. PANTOPRAZOLE [Concomitant]
     Dosage: 1 DF, UNK
  4. GLIBOMET [Concomitant]
     Dosage: 3 DF, UNK
  5. LANTUS [Concomitant]
     Dosage: 25 IU, UNK
  6. PRITORPLUS [Concomitant]
     Dosage: 1 DF, UNK

REACTIONS (4)
  - Rhabdomyolysis [Recovering/Resolving]
  - Colitis [Recovering/Resolving]
  - Plantar fasciitis [Recovering/Resolving]
  - Tendonitis [Recovering/Resolving]
